FAERS Safety Report 17017468 (Version 1)
Quarter: 2019Q4

REPORT INFORMATION
  Report Type: Spontaneous
  Country: NO (occurrence: NO)
  Receive Date: 20191111
  Receipt Date: 20191111
  Transmission Date: 20200122
  Serious: Yes (Death)
  Sender: FDA-Public Use
  Company Number: NO-ASTRAZENECA-2019SF58979

PATIENT
  Age: 71 Year
  Sex: Female

DRUGS (11)
  1. HEPARIN LEO [Suspect]
     Active Substance: HEPARIN SODIUM
     Indication: ACUTE MYOCARDIAL INFARCTION
     Dosage: 10 000E, 10000 INTERNATIONAL UNITS
     Route: 042
     Dates: start: 20191020, end: 20191020
  2. ACETYLSALISYLSYRE ACTAVIS [Suspect]
     Active Substance: ASPIRIN
     Indication: ACUTE MYOCARDIAL INFARCTION
     Dosage: 300.0MG ONCE/SINGLE ADMINISTRATION
     Route: 048
     Dates: start: 20191020, end: 20191020
  3. REOPRO [Suspect]
     Active Substance: ABCIXIMAB
     Indication: PROPHYLAXIS
     Dosage: UNKNOWN DOSAGE
     Route: 042
     Dates: start: 20191020, end: 20191020
  4. RENITEC [Concomitant]
     Indication: HYPERTENSION
  5. METALYSE [Suspect]
     Active Substance: TENECTEPLASE
     Indication: ACUTE MYOCARDIAL INFARCTION
     Dosage: 10000 INTERNATIONAL UNITS, 10 000 E ACCORDING TO WEIGHT (ABOVE 90 KG)
     Route: 042
     Dates: start: 20191020, end: 20191020
  6. SOBRIL [Concomitant]
     Active Substance: OXAZEPAM
     Indication: ANXIETY
     Dosage: 1 TABLET UP TO X 1 WHEN REQUIRED
  7. BRILIQUE [Suspect]
     Active Substance: TICAGRELOR
     Indication: ACUTE MYOCARDIAL INFARCTION
     Dosage: ONE TIME DOSE 180 MG
     Route: 048
     Dates: start: 20191020, end: 20191020
  8. LEVAXIN [Concomitant]
     Active Substance: LEVOTHYROXINE SODIUM
     Indication: HYPOTHYROIDISM
     Dosage: 50UG/INHAL DAILY
  9. LIPITOR [Concomitant]
     Active Substance: ATORVASTATIN CALCIUM
     Indication: HYPERCHOLESTEROLAEMIA
     Dosage: 40MBQ DAILY
  10. METOPROLOL TARTRATE. [Concomitant]
     Active Substance: METOPROLOL TARTRATE
     Indication: HYPERTENSION
  11. PARACET [Concomitant]
     Active Substance: ACETAMINOPHEN
     Indication: ARTHRALGIA
     Dosage: 1 TABLET UP TO 3 TIMES WHEN NEEDED

REACTIONS (1)
  - Cerebral haemorrhage [Fatal]

NARRATIVE: CASE EVENT DATE: 20191021
